FAERS Safety Report 16128758 (Version 1)
Quarter: 2019Q1

REPORT INFORMATION
  Report Type: Spontaneous
  Country: US (occurrence: US)
  Receive Date: 20190328
  Receipt Date: 20190328
  Transmission Date: 20190418
  Serious: No
  Sender: FDA-Public Use
  Company Number: US-ASTRAZENECA-2018SF43176

PATIENT
  Age: 52 Year
  Sex: Male
  Weight: 115.7 kg

DRUGS (3)
  1. BYETTA [Suspect]
     Active Substance: EXENATIDE
     Route: 058
     Dates: start: 201807, end: 201809
  2. BYDUREON BCISE [Suspect]
     Active Substance: EXENATIDE
     Route: 058
     Dates: start: 201807, end: 201809
  3. BYETTA [Suspect]
     Active Substance: EXENATIDE
     Route: 058
     Dates: start: 20180713, end: 20181001

REACTIONS (2)
  - Injection site erythema [Unknown]
  - Injection site nodule [Not Recovered/Not Resolved]

NARRATIVE: CASE EVENT DATE: 20180813
